FAERS Safety Report 6194926-9 (Version None)
Quarter: 2009Q2

REPORT INFORMATION
  Report Type: 
  Country: None (occurrence: None)
  Receive Date: 20090515
  Receipt Date: 20090515
  Transmission Date: 20091009
  Serious: Yes (Hospitalization)
  Sender: FDA-Public Use
  Company Number: None

PATIENT
  Age: 57 Year
  Sex: Female
  Weight: 82.5547 kg

DRUGS (2)
  1. FENTANYL [Suspect]
     Indication: ANAESTHESIA
     Dosage: 125 MICROGRAMS ONCE IV
     Route: 042
     Dates: start: 20090512, end: 20090512
  2. FENTANYL [Suspect]
     Indication: COLONOSCOPY
     Dosage: 125 MICROGRAMS ONCE IV
     Route: 042
     Dates: start: 20090512, end: 20090512

REACTIONS (6)
  - CHILLS [None]
  - DEHYDRATION [None]
  - DEPRESSION [None]
  - NAUSEA [None]
  - RESTLESSNESS [None]
  - VOMITING [None]
